FAERS Safety Report 8350555-X (Version None)
Quarter: 2012Q2

REPORT INFORMATION
  Report Type: 
  Country: None (occurrence: None)
  Receive Date: 20120510
  Receipt Date: 20120502
  Transmission Date: 20120825
  Serious: Yes (Hospitalization, Other)
  Sender: FDA-Public Use
  Company Number: LB-ALLERGAN-1206333US

PATIENT
  Age: 60 Year
  Sex: Female

DRUGS (2)
  1. BOTOX [Suspect]
     Indication: SKIN WRINKLING
     Dosage: 4 UNITS, SINGLE
  2. BOTOX [Suspect]
     Dosage: 6 UNITS, SINGLE

REACTIONS (1)
  - VASCULAR PSEUDOANEURYSM [None]
